FAERS Safety Report 12822668 (Version 3)
Quarter: 2018Q2

REPORT INFORMATION
  Report Type: Spontaneous
  Country: US (occurrence: US)
  Receive Date: 20161007
  Receipt Date: 20180523
  Transmission Date: 20180711
  Serious: No
  Sender: FDA-Public Use
  Company Number: US-PFIZER INC-2016465812

PATIENT
  Age: 73 Year
  Sex: Male

DRUGS (1)
  1. LYRICA [Suspect]
     Active Substance: PREGABALIN
     Dosage: 75 MG, DAILY (IN THE MORNING)

REACTIONS (4)
  - Pain [Unknown]
  - Drug ineffective [Unknown]
  - Paraesthesia [Unknown]
  - Suffocation feeling [Unknown]
